FAERS Safety Report 9748837 (Version 2)
Quarter: 2014Q1

REPORT INFORMATION
  Report Type: Spontaneous
  Country: US (occurrence: US)
  Receive Date: 20131212
  Receipt Date: 20140312
  Transmission Date: 20141002
  Serious: No
  Sender: FDA-Public Use
  Company Number: US-INCYTE CORPORATION-2013IN001970

PATIENT
  Age: 69 Year
  Sex: Male

DRUGS (7)
  1. JAKAFI [Suspect]
     Indication: MYELOFIBROSIS
     Dosage: 20 MG, BID
     Route: 048
     Dates: start: 20130410
  2. OMEGA 3                            /01334101/ [Concomitant]
  3. INDOMETHACIN                       /00003801/ [Concomitant]
  4. SYNTHROID [Concomitant]
  5. TAMSULOISIN [Concomitant]
  6. VITAMIN C                          /00008001/ [Concomitant]
  7. VITAMIN D                          /00107901/ [Concomitant]

REACTIONS (2)
  - Splenomegaly [Recovered/Resolved]
  - Viral infection [Unknown]
